FAERS Safety Report 9885605 (Version 1)
Quarter: 2014Q1

REPORT INFORMATION
  Report Type: Spontaneous
  Country: IT (occurrence: None)
  Receive Date: 20140206
  Receipt Date: 20140206
  Transmission Date: 20141002
  Serious: Yes (Hospitalization)
  Sender: FDA-Public Use
  Company Number: 2014HINTIL0082

PATIENT
  Age: 35 Year
  Sex: Male

DRUGS (5)
  1. EMTRICITABINE + TENOFOVIR [Suspect]
     Indication: ANTIRETROVIRAL THERAPY
     Dates: start: 201203
  2. DARUNAVIR (+) RITONAVIR [Suspect]
     Indication: ANTIRETROVIRAL THERAPY
     Dates: start: 201203
  3. BLEOMYCIN [Suspect]
     Indication: CHEMOTHERAPY
  4. CISPLATIN (CISPLATIN) [Suspect]
     Indication: CHEMOTHERAPY
  5. ETOPOSIDE (ETOPOSIDE) [Suspect]
     Indication: CHEMOTHERAPY

REACTIONS (1)
  - Acute generalised exanthematous pustulosis [None]
